FAERS Safety Report 9764294 (Version 2)
Quarter: 2013Q4

REPORT INFORMATION
  Report Type: Report from Study
  Country: JP (occurrence: JP)
  Receive Date: 20131217
  Receipt Date: 20131217
  Transmission Date: 20140711
  Serious: Yes (Other)
  Sender: FDA-Public Use
  Company Number: JP-009507513-1305JPN006081

PATIENT
  Age: 40 Year
  Sex: Female
  Weight: 52 kg

DRUGS (9)
  1. GANIRELIX ACETATE [Suspect]
     Indication: PREVENTION OF PREMATURE OVULATION
     Dosage: 0.25 MG, QD
     Route: 058
     Dates: start: 20100614, end: 20100616
  2. PREGNYL 5000IU [Suspect]
     Indication: OVULATION INDUCTION
     Dosage: 10 THOUSAND-MILLION UNIT, QD
     Route: 030
     Dates: start: 20100617, end: 20100617
  3. PROGESTON [Concomitant]
     Indication: IN VITRO FERTILISATION
     Dosage: 50 MG, QD
     Route: 030
     Dates: start: 20100621, end: 20100711
  4. ESTRANA [Concomitant]
     Indication: IN VITRO FERTILISATION
     Dosage: 1 DF, QD
     Route: 062
     Dates: start: 20100624, end: 20100721
  5. PROGE DEPOT [Concomitant]
     Indication: IN VITRO FERTILISATION
     Dosage: 125 MG, QD
     Route: 030
     Dates: start: 20100712, end: 20100721
  6. JULINA [Concomitant]
     Indication: IN VITRO FERTILISATION
     Dosage: 2 DF, QD
     Route: 048
     Dates: start: 20100525, end: 20100607
  7. FOLLISTIM [Concomitant]
     Indication: IN VITRO FERTILISATION
     Dosage: 225 UNDER 1000UNIT QD
     Route: 058
     Dates: start: 20100607, end: 20100617
  8. MENOTROPINS [Concomitant]
     Indication: IN VITRO FERTILISATION
     Dosage: 75 UNDER 1000UNIT, QD
     Route: 030
     Dates: start: 20100607, end: 20100613
  9. GONADOTROPIN, CHORIONIC [Concomitant]
     Indication: IN VITRO FERTILISATION
     Dosage: 100 UNDER 1000UNIT, QD
     Route: 030
     Dates: start: 20100614, end: 20100617

REACTIONS (1)
  - Abortion [Recovered/Resolved]
